FAERS Safety Report 14770329 (Version 4)
Quarter: 2018Q4

REPORT INFORMATION
  Report Type: Other
  Country: US (occurrence: US)
  Receive Date: 20180417
  Receipt Date: 20181106
  Transmission Date: 20190204
  Serious: Yes (Other)
  Sender: FDA-Public Use
  Company Number: US-DUCHESNAY INC.-2045877

PATIENT
  Age: 59 Year
  Sex: Female

DRUGS (4)
  1. HUMIRA [Suspect]
     Active Substance: ADALIMUMAB
     Route: 058
     Dates: start: 20160507
  2. OSPHENA [Suspect]
     Active Substance: OSPEMIFENE
     Route: 065
  3. HUMIRA [Suspect]
     Active Substance: ADALIMUMAB
     Route: 058
     Dates: start: 2016
  4. DICYCLOMINE [Suspect]
     Active Substance: DICYCLOMINE HYDROCHLORIDE
     Route: 065

REACTIONS (19)
  - Off label use [None]
  - Weight decreased [Unknown]
  - Presyncope [Unknown]
  - Decreased appetite [Unknown]
  - Abdominal discomfort [Unknown]
  - Alopecia [Unknown]
  - Abdominal pain [Unknown]
  - Lactose intolerance [Unknown]
  - Vomiting [Unknown]
  - Protein deficiency [Unknown]
  - Eczema [Unknown]
  - Nausea [Unknown]
  - Diarrhoea [Unknown]
  - Small intestinal obstruction [Unknown]
  - Fatigue [Not Recovered/Not Resolved]
  - Crohn^s disease [Unknown]
  - Stress [Unknown]
  - Depression [Unknown]
  - Neuropathy peripheral [Unknown]

NARRATIVE: CASE EVENT DATE: 20170419
